FAERS Safety Report 9986396 (Version 2)
Quarter: 2014Q1

REPORT INFORMATION
  Report Type: Spontaneous
  Country: IT (occurrence: IT)
  Receive Date: 20140307
  Receipt Date: 20140327
  Transmission Date: 20141002
  Serious: Yes (Other)
  Sender: FDA-Public Use
  Company Number: IT-VERTEX PHARMACEUTICALS INC-2014-001129

PATIENT
  Age: 42 Year
  Sex: Male

DRUGS (7)
  1. INCIVO [Suspect]
     Indication: CHRONIC HEPATITIS C
     Route: 048
     Dates: start: 20140103, end: 20140207
  2. PEGINTRON [Concomitant]
     Indication: CHRONIC HEPATITIS C
     Dosage: 100 ?G, UNK
     Route: 058
  3. PEGINTRON [Concomitant]
     Dosage: DOSAGE FORM: SOLUTION FOR INJECTION
  4. REBETOL [Concomitant]
     Indication: CHRONIC HEPATITIS C
     Dosage: 1000 MG, UNK
     Route: 048
  5. REBETOL [Concomitant]
     Dosage: DOSAGE FORM: CAPSULES
  6. FOLIDEX [Concomitant]
     Indication: SUPPORTIVE CARE
     Dosage: 400 ?G, UNK
     Route: 048
  7. FOLIDEX [Concomitant]
     Dosage: DOSAGE FORM: TABLETS

REACTIONS (2)
  - Rash maculo-papular [Recovering/Resolving]
  - Pruritus generalised [Recovering/Resolving]
